FAERS Safety Report 16862118 (Version 2)
Quarter: 2019Q4

REPORT INFORMATION
  Report Type: Spontaneous
  Country: US (occurrence: US)
  Receive Date: 20190927
  Receipt Date: 20191017
  Transmission Date: 20200122
  Serious: No
  Sender: FDA-Public Use
  Company Number: US-CELGENEUS-USA-20190907540

PATIENT
  Age: 76 Year
  Sex: Female

DRUGS (5)
  1. REVLIMID [Suspect]
     Active Substance: LENALIDOMIDE
     Indication: B-CELL LYMPHOMA
  2. REVLIMID [Suspect]
     Active Substance: LENALIDOMIDE
     Indication: OFF LABEL USE
  3. REVLIMID [Suspect]
     Active Substance: LENALIDOMIDE
     Indication: CHRONIC LYMPHOCYTIC LEUKAEMIA
     Dosage: 15 MILLIGRAM
     Route: 048
     Dates: start: 201810
  4. REVLIMID [Suspect]
     Active Substance: LENALIDOMIDE
     Indication: DIFFUSE LARGE B-CELL LYMPHOMA
     Dosage: 15 MILLIGRAM
     Route: 048
     Dates: start: 20190117
  5. REVLIMID [Suspect]
     Active Substance: LENALIDOMIDE
     Indication: LYMPHOCYTIC LEUKAEMIA
     Dosage: 15 MILLIGRAM
     Route: 048
     Dates: start: 201908

REACTIONS (6)
  - Pruritus [Unknown]
  - Dyspepsia [Unknown]
  - Alopecia [Unknown]
  - Fatigue [Unknown]
  - White blood cell count decreased [Unknown]
  - Rash [Unknown]

NARRATIVE: CASE EVENT DATE: 201908
